FAERS Safety Report 7602647-8 (Version None)
Quarter: 2011Q3

REPORT INFORMATION
  Report Type: 
  Country: None (occurrence: None)
  Receive Date: 20110712
  Receipt Date: 20110629
  Transmission Date: 20111222
  Serious: Yes (Other)
  Sender: FDA-Public Use
  Company Number: CA-ELI_LILLY_AND_COMPANY-CA201106008535

PATIENT
  Sex: Male
  Weight: 81.633 kg

DRUGS (6)
  1. ASPIRIN [Concomitant]
  2. ZYPREXA [Suspect]
     Dosage: 10 MG, EACH EVENING
     Route: 048
  3. SERTRALINE HYDROCHLORIDE [Concomitant]
  4. DIVALPROEX SODIUM [Concomitant]
  5. ZYPREXA ZYDIS [Suspect]
     Dosage: 10 MG, EACH EVENING
     Route: 048
  6. ZOPICLONE [Concomitant]

REACTIONS (8)
  - HEPATITIS C [None]
  - DIABETES MELLITUS [None]
  - ALANINE AMINOTRANSFERASE INCREASED [None]
  - VISION BLURRED [None]
  - PANCREATIC ENZYMES INCREASED [None]
  - EPILEPSY [None]
  - WEIGHT INCREASED [None]
  - ASPARTATE AMINOTRANSFERASE INCREASED [None]
